FAERS Safety Report 5177877-8 (Version None)
Quarter: 2006Q4

REPORT INFORMATION
  Report Type: 
  Country: None (occurrence: None)
  Receive Date: 20061208
  Receipt Date: 20061128
  Transmission Date: 20070319
  Serious: Yes (Hospitalization)
  Sender: FDA-Public Use
  Company Number: 2006148003

PATIENT
  Age: 46 Year
  Sex: Female
  Weight: 64 kg

DRUGS (2)
  1. ATORVASTATIN CALCIUM [Suspect]
     Dosage: ORAL
     Route: 048
     Dates: end: 20060715
  2. TRANDOLAPRIL [Suspect]
     Dosage: ORAL
     Route: 048
     Dates: end: 20060715

REACTIONS (5)
  - ANTIBODY TEST POSITIVE [None]
  - COXSACKIE VIRUS SEROLOGY TEST POSITIVE [None]
  - ECZEMA [None]
  - LICHENOID KERATOSIS [None]
  - RASH PRURITIC [None]
